FAERS Safety Report 7895687-5 (Version None)
Quarter: 2011Q4

REPORT INFORMATION
  Report Type: 
  Country: None (occurrence: None)
  Receive Date: 20111027
  Receipt Date: 20110609
  Transmission Date: 20120403
  Serious: Yes (Disabling)
  Sender: FDA-Public Use
  Company Number: WAES 1106USA01202

PATIENT
  Age: 75 Year
  Sex: Male

DRUGS (3)
  1. STATIN (UNSPECIFIED) UNK [Suspect]
     Dosage: PO
     Route: 048
  2. MEVACOR [Suspect]
     Indication: LOW DENSITY LIPOPROTEIN INCREASED
     Dosage: DAILY/PO
     Route: 048
     Dates: end: 20110209
  3. ASPIRIN [Concomitant]

REACTIONS (1)
  - ARTHRALGIA [None]
